FAERS Safety Report 5064003-9 (Version None)
Quarter: 2006Q3

REPORT INFORMATION
  Report Type: 
  Country: None (occurrence: None)
  Receive Date: 20060703
  Receipt Date: 20050927
  Transmission Date: 20061208
  Serious: No
  Sender: FDA-Public Use
  Company Number: 2005S1009726

PATIENT
  Age: 37 Year
  Sex: Male
  Weight: 98.8842 kg

DRUGS (7)
  1. CLOZAPINE [Suspect]
     Indication: SCHIZOPHRENIA, PARANOID TYPE
     Dosage: SEE IMAGE
     Route: 048
  2. CLOZAPINE [Suspect]
     Indication: SCHIZOPHRENIA, PARANOID TYPE
     Dosage: SEE IMAGE
     Route: 048
     Dates: start: 20050516
  3. CLOZAPINE [Suspect]
     Indication: SCHIZOPHRENIA, PARANOID TYPE
     Dosage: SEE IMAGE
     Route: 048
     Dates: start: 20050516
  4. DIPHENHYDRAMINE [Concomitant]
  5. VALPROATE SODIUM [Concomitant]
  6. PHENYTOIN SODIUM [Concomitant]
  7. PAROXETINE HYDROCHLORIDE [Concomitant]

REACTIONS (3)
  - GRANULOCYTOPENIA [None]
  - NAUSEA [None]
  - VOMITING [None]
